FAERS Safety Report 15298601 (Version 1)
Quarter: 2018Q3

REPORT INFORMATION
  Report Type: Spontaneous
  Country: JP (occurrence: JP)
  Receive Date: 20180820
  Receipt Date: 20180820
  Transmission Date: 20181010
  Serious: Yes (Other)
  Sender: FDA-Public Use
  Company Number: JP-NAPPMUNDI-GBR-2017-0051303

PATIENT
  Age: 74 Year
  Sex: Male

DRUGS (2)
  1. OXIFAST [Suspect]
     Active Substance: OXYCODONE
     Indication: SMALL INTESTINE CARCINOMA
     Dosage: UNK
     Route: 058
     Dates: start: 2016, end: 2016
  2. OXIFAST [Suspect]
     Active Substance: OXYCODONE
     Indication: METASTASES TO LYMPH NODES

REACTIONS (1)
  - Delirium [Recovered/Resolved]

NARRATIVE: CASE EVENT DATE: 2016
